FAERS Safety Report 5112541-2 (Version None)
Quarter: 2006Q3

REPORT INFORMATION
  Report Type: 
  Country: None (occurrence: None)
  Receive Date: 20060731
  Receipt Date: 20060630
  Transmission Date: 20061208
  Serious: No
  Sender: FDA-Public Use
  Company Number: 2006PV016743

PATIENT
  Age: 69 Year
  Sex: Female
  Weight: 113.3993 kg

DRUGS (7)
  1. BYETTA [Suspect]
     Indication: DIABETES MELLITUS NON-INSULIN-DEPENDENT
     Dosage: SEE IMAGE
     Route: 058
     Dates: start: 20060528, end: 20060627
  2. BYETTA [Suspect]
     Indication: DIABETES MELLITUS NON-INSULIN-DEPENDENT
     Dosage: SEE IMAGE
     Route: 058
     Dates: start: 20060628
  3. LOTREL [Concomitant]
  4. VYTORIN [Concomitant]
  5. LASIX [Concomitant]
  6. SYNTHROID [Concomitant]
  7. EFFEXOR [Concomitant]

REACTIONS (7)
  - ABDOMINAL DISTENSION [None]
  - BLOOD GLUCOSE DECREASED [None]
  - FATIGUE [None]
  - FEELING COLD [None]
  - FLUSHING [None]
  - NAUSEA [None]
  - PALPITATIONS [None]
